FAERS Safety Report 21861300 (Version 2)
Quarter: 2023Q1

REPORT INFORMATION
  Report Type: Spontaneous
  Country: JP (occurrence: JP)
  Receive Date: 20230113
  Receipt Date: 20230224
  Transmission Date: 20230418
  Serious: Yes (Hospitalization, Other)
  Sender: FDA-Public Use
  Company Number: JP-GLAXOSMITHKLINE-JP2023JPN003095

PATIENT

DRUGS (2)
  1. VALTREX [Suspect]
     Active Substance: VALACYCLOVIR HYDROCHLORIDE
     Indication: Herpes zoster
     Dosage: 3000 MG
     Route: 048
  2. LOXOPROFEN SODIUM [Concomitant]
     Active Substance: LOXOPROFEN SODIUM
     Indication: Herpes zoster
     Dosage: UNK

REACTIONS (11)
  - Toxic encephalopathy [Unknown]
  - Acute kidney injury [Unknown]
  - Renal impairment [Recovering/Resolving]
  - Altered state of consciousness [Recovering/Resolving]
  - Malaise [Unknown]
  - Vomiting [Unknown]
  - Oral pain [Unknown]
  - Feeding disorder [Unknown]
  - Nausea [Unknown]
  - Disorientation [Unknown]
  - Restlessness [Unknown]
